FAERS Safety Report 6100458-6 (Version None)
Quarter: 2009Q1

REPORT INFORMATION
  Report Type: 
  Country: None (occurrence: None)
  Receive Date: 20090226
  Receipt Date: 20090216
  Transmission Date: 20090719
  Serious: Yes (Other)
  Sender: FDA-Public Use
  Company Number: DSA_33230_2009

PATIENT
  Sex: Male
  Weight: 96.1626 kg

DRUGS (3)
  1. CARDIZEM [Suspect]
     Indication: HYPERTENSION
     Dosage: (300 MG QD ORAL)
     Route: 048
     Dates: start: 19920101
  2. ASPIRIN [Concomitant]
  3. DAILY MULTIVITAMIN [Concomitant]

REACTIONS (4)
  - BLOOD PRESSURE FLUCTUATION [None]
  - BLOOD PRESSURE INCREASED [None]
  - FALL [None]
  - NECK INJURY [None]
